FAERS Safety Report 23592188 (Version 1)
Quarter: 2024Q1

REPORT INFORMATION
  Report Type: Spontaneous
  Country: US (occurrence: None)
  Receive Date: 20240304
  Receipt Date: 20240304
  Transmission Date: 20240410
  Serious: Yes (Hospitalization)
  Sender: FDA-Public Use
  Company Number: None

PATIENT
  Sex: Male

DRUGS (3)
  1. OPSUMIT [Suspect]
     Active Substance: MACITENTAN
     Indication: Pulmonary arterial hypertension
     Dosage: FREQUENCY : DAILY;?
     Route: 048
     Dates: start: 201902
  2. ADEMPAS [Concomitant]
  3. REMODULIN MDV [Concomitant]

REACTIONS (7)
  - Headache [None]
  - Pulmonary arterial hypertension [None]
  - Condition aggravated [None]
  - Ear discomfort [None]
  - Burning sensation [None]
  - Dyspnoea [None]
  - Loss of consciousness [None]
